FAERS Safety Report 9688455 (Version 2)
Quarter: 2013Q4

REPORT INFORMATION
  Report Type: Spontaneous
  Country: IT (occurrence: IT)
  Receive Date: 20131114
  Receipt Date: 20131223
  Transmission Date: 20140711
  Serious: Yes (Hospitalization)
  Sender: FDA-Public Use
  Company Number: IT-009507513-1311ITA004381

PATIENT
  Sex: Female

DRUGS (5)
  1. VICTRELIS [Suspect]
     Indication: HEPATITIS C ANTIBODY POSITIVE
     Dosage: 2400 MG, QD
     Route: 048
     Dates: start: 20130520, end: 20130912
  2. PEGASYS [Suspect]
     Indication: HEPATITIS C ANTIBODY POSITIVE
     Dosage: 180 MICROGRAM, QW
     Route: 058
     Dates: start: 20130423, end: 20130912
  3. COPEGUS [Suspect]
     Indication: HEPATITIS C ANTIBODY POSITIVE
     Dosage: 800 MG, QD
     Route: 048
     Dates: start: 20130423, end: 20130912
  4. PANTOPRAZOLE [Concomitant]
  5. NEBIVOLOL [Concomitant]

REACTIONS (3)
  - Pancytopenia [Recovered/Resolved]
  - Pyrexia [Recovered/Resolved]
  - Asthenia [Recovered/Resolved]
